FAERS Safety Report 7502845-8 (Version None)
Quarter: 2011Q2

REPORT INFORMATION
  Report Type: 
  Country: None (occurrence: None)
  Receive Date: 20110525
  Receipt Date: 20100817
  Transmission Date: 20111010
  Serious: No
  Sender: FDA-Public Use
  Company Number: US-NOVEN-ALL1-2010-04360

PATIENT

DRUGS (5)
  1. DAYTRANA [Suspect]
     Dosage: 20 MG, 1X/DAY:QD
     Route: 062
     Dates: start: 20100501, end: 20100601
  2. DAYTRANA [Suspect]
     Dosage: 10 MG, 1X/DAY:QD
     Route: 062
     Dates: start: 20100301, end: 20100501
  3. DAYTRANA [Suspect]
     Dosage: 20 MG, 1X/DAY:QD
     Route: 062
     Dates: start: 20100801, end: 20100815
  4. DAYTRANA [Suspect]
     Dosage: 20 MG, 1X/DAY:QD, (2) 10 MG PATCHES
     Route: 062
     Dates: start: 20100816, end: 20100816
  5. DAYTRANA [Suspect]
     Dosage: 20 MG, 1X/DAY:QD
     Route: 062
     Dates: start: 20100817

REACTIONS (5)
  - APPLICATION SITE ERYTHEMA [None]
  - APPLICATION SITE URTICARIA [None]
  - EXPIRED DRUG ADMINISTERED [None]
  - APPLICATION SITE PRURITUS [None]
  - CONDITION AGGRAVATED [None]
